FAERS Safety Report 5524066-0 (Version None)
Quarter: 2007Q4

REPORT INFORMATION
  Report Type: 
  Country: None (occurrence: None)
  Receive Date: 20071121
  Receipt Date: 20071105
  Transmission Date: 20080405
  Serious: No
  Sender: FDA-Public Use
  Company Number: US-BOEHRINGER INGELHEIM PHARMACEUTICALS, INC.-2007-BP-17853BP

PATIENT
  Age: 71 Year
  Sex: Female

DRUGS (5)
  1. SPIRIVA [Suspect]
     Indication: CHRONIC OBSTRUCTIVE PULMONARY DISEASE
     Route: 055
     Dates: start: 20070623
  2. TRANXENE [Suspect]
  3. ATENOLOL [Concomitant]
  4. DIGOXIN [Concomitant]
  5. BUFFERIN [Concomitant]
     Indication: PAIN

REACTIONS (8)
  - CONSTIPATION [None]
  - CORNEAL DISORDER [None]
  - DRY EYE [None]
  - DRY MOUTH [None]
  - DYSGEUSIA [None]
  - DYSPNOEA [None]
  - FEELING JITTERY [None]
  - NASAL CONGESTION [None]
